FAERS Safety Report 7623481 (Version 3)
Quarter: 2015Q4

REPORT INFORMATION
  Report Type: Report from Study
  Country: AU (occurrence: AU)
  Receive Date: 20101011
  Receipt Date: 20151125
  Transmission Date: 20160305
  Serious: Yes (Death, Life-Threatening, Hospitalization)
  Sender: FDA-Public Use
  Company Number: PHHO2010AU15115

PATIENT
  Age: 28 Year
  Sex: Female

DRUGS (16)
  1. IRRADIATION [Concomitant]
     Active Substance: UNSPECIFIED INGREDIENT
  2. EVEROLIMUS [Suspect]
     Active Substance: EVEROLIMUS
     Dosage: 5 MG, DAILY
     Route: 048
     Dates: start: 20100820, end: 20100906
  3. IDARUBICIN [Suspect]
     Active Substance: IDARUBICIN
     Indication: PRODUCT USED FOR UNKNOWN INDICATION
     Route: 065
  4. AZACITIDINE. [Suspect]
     Active Substance: AZACITIDINE
     Indication: ACUTE MYELOID LEUKAEMIA
     Dosage: 128 MG, UNK
     Route: 065
     Dates: start: 20100621
  5. AZITHROMYCIN [Suspect]
     Active Substance: AZITHROMYCIN ANHYDROUS
     Indication: PRODUCT USED FOR UNKNOWN INDICATION
     Dosage: UNK
     Route: 065
     Dates: end: 20101003
  6. CYCLOPHOSPHAMIDE. [Suspect]
     Active Substance: CYCLOPHOSPHAMIDE
     Indication: PRODUCT USED FOR UNKNOWN INDICATION
     Route: 065
  7. CICLOSPORIN [Concomitant]
     Active Substance: CYCLOSPORINE
  8. AZACITIDINE. [Suspect]
     Active Substance: AZACITIDINE
     Dosage: 128 MG, UNK
     Route: 065
     Dates: start: 20100816, end: 20100824
  9. AZACITIDINE. [Suspect]
     Active Substance: AZACITIDINE
     Dosage: UNK
     Route: 065
  10. VITAMIN K [Concomitant]
     Active Substance: PHYTONADIONE
  11. EVEROLIMUS [Suspect]
     Active Substance: EVEROLIMUS
     Dosage: 2.5 MG, UNK
     Route: 048
  12. ATGAM [Concomitant]
     Active Substance: EQUINE THYMOCYTE IMMUNE GLOBULIN
  13. EVEROLIMUS [Suspect]
     Active Substance: EVEROLIMUS
     Indication: ACUTE MYELOID LEUKAEMIA
     Dosage: 5 MG, DAILY
     Route: 048
     Dates: start: 20100625
  14. ADRIAMYCIN [Suspect]
     Active Substance: DOXORUBICIN HYDROCHLORIDE
     Indication: PRODUCT USED FOR UNKNOWN INDICATION
     Route: 065
  15. MTX [Concomitant]
     Active Substance: METHOTREXATE SODIUM
  16. PALIFERMIN [Concomitant]
     Active Substance: PALIFERMIN

REACTIONS (41)
  - Neutropenia [Fatal]
  - Mucormycosis [Fatal]
  - Sepsis [Fatal]
  - Oedema [Fatal]
  - Thrombosis [Fatal]
  - Necrotising gastritis [Fatal]
  - Weight increased [Fatal]
  - Coagulopathy [Fatal]
  - Pleural effusion [Fatal]
  - Hypotension [Fatal]
  - Dilatation ventricular [Fatal]
  - Liver abscess [Fatal]
  - Myocarditis bacterial [Fatal]
  - Bronchiolitis [Fatal]
  - Pneumonia [Fatal]
  - Ejection fraction decreased [Fatal]
  - Orthopnoea [Fatal]
  - Left ventricular dysfunction [Fatal]
  - Atrial fibrillation [Fatal]
  - Cardiac failure [Fatal]
  - Dilatation atrial [Fatal]
  - Mitral valve incompetence [Fatal]
  - Cardiac arrest [Unknown]
  - Dyspnoea [Fatal]
  - Liver injury [Fatal]
  - Acute kidney injury [Fatal]
  - Pyrexia [Fatal]
  - Depressed level of consciousness [Fatal]
  - Ventricular hypokinesia [Fatal]
  - Anaphylactic reaction [Unknown]
  - Multi-organ failure [Fatal]
  - Left ventricular failure [Fatal]
  - Mycoplasma test positive [Fatal]
  - Alveolitis [Fatal]
  - Abdominal pain [Fatal]
  - Fluid overload [Fatal]
  - Left ventricular end-diastolic pressure increased [Fatal]
  - Liver function test abnormal [Fatal]
  - Delirium [Fatal]
  - Respiratory distress [Fatal]
  - Viral infection [Fatal]

NARRATIVE: CASE EVENT DATE: 20100926
